FAERS Safety Report 10569643 (Version 3)
Quarter: 2014Q4

REPORT INFORMATION
  Report Type: Spontaneous
  Country: JP (occurrence: JP)
  Receive Date: 20141107
  Receipt Date: 20141124
  Transmission Date: 20150529
  Serious: Yes (Death)
  Sender: FDA-Public Use
  Company Number: JP-ROCHE-1461451

PATIENT
  Age: 66 Year
  Sex: Male
  Weight: 53 kg

DRUGS (14)
  1. ELPLAT [Concomitant]
     Active Substance: OXALIPLATIN
     Indication: COLON CANCER METASTATIC
     Dosage: DOSAGE IS UNCERTAIN.
     Route: 041
     Dates: start: 20131004, end: 20131227
  2. PLAVIX [Concomitant]
     Active Substance: CLOPIDOGREL BISULFATE
     Route: 048
     Dates: start: 20130826, end: 20140705
  3. 5-FU [Concomitant]
     Active Substance: FLUOROURACIL
     Indication: COLON CANCER METASTATIC
     Dosage: DOSAGE IS UNCERTAIN.
     Route: 040
     Dates: start: 20130626, end: 20130907
  4. IRINOTECAN HYDROCHLORIDE. [Concomitant]
     Active Substance: IRINOTECAN HYDROCHLORIDE
     Indication: COLON CANCER METASTATIC
     Dosage: COMPLETED TREATMENT CYCLE NUMBER: NUMBER 22 CYCLES OF BV ADMINISTERING TOTAL ?CYCLE (APPEAR WHILE TR
     Route: 041
     Dates: start: 20140124, end: 20140620
  5. AVASTIN [Suspect]
     Active Substance: BEVACIZUMAB
     Indication: COLON CANCER METASTATIC
     Dosage: TREATMENT LINE: 1 COMPLETED TREATMENT CYCLE NUMBER: 22
     Route: 041
     Dates: start: 20130626, end: 20130907
  6. GIMERACIL\OTERACIL\TEGAFUR [Concomitant]
     Active Substance: GIMERACIL\OTERACIL\TEGAFUR
     Indication: COLON CANCER METASTATIC
     Route: 048
     Dates: start: 20131004, end: 20131227
  7. TS-1 [Concomitant]
     Active Substance: GIMERACIL\OTERACIL\TEGAFUR
     Indication: COLON CANCER METASTATIC
     Dosage: 14 TIMES/FOUR WEEKS; COMPLETED TREATMENT CYCLE NUMBER: NUMBER 22 CYCLES OF BV ADMINISTERING TOTAL ?C
     Route: 048
     Dates: start: 20140124, end: 20140703
  8. ELPLAT [Concomitant]
     Active Substance: OXALIPLATIN
     Indication: COLON CANCER METASTATIC
     Dosage: DOSAGE IS UNCERTAIN.
     Route: 041
     Dates: start: 20130626, end: 20130907
  9. CALCIUM LEVOFOLINATE [Concomitant]
     Active Substance: LEVOLEUCOVORIN CALCIUM
     Indication: COLON CANCER METASTATIC
     Dosage: DOSAGE IS UNCERTAIN.
     Route: 041
     Dates: start: 20130626, end: 20130907
  10. AVASTIN [Suspect]
     Active Substance: BEVACIZUMAB
     Indication: COLON CANCER METASTATIC
     Dosage: TREATMENT LINE: 2 COMPLETED TREATMENT CYCLE NUMBER: 22
     Route: 041
     Dates: start: 20131004, end: 20131227
  11. AVASTIN [Suspect]
     Active Substance: BEVACIZUMAB
     Indication: COLON CANCER METASTATIC
     Dosage: TREATMENT LINE: 3 COMPLETED TREATMENT CYCLE NUMBER: 22
     Route: 041
     Dates: start: 20140124, end: 20140620
  12. 5-FU [Concomitant]
     Active Substance: FLUOROURACIL
     Indication: COLON CANCER METASTATIC
     Dosage: DOSAGE IS UNCERTAIN.
     Route: 041
     Dates: start: 20130626, end: 20130909
  13. CELECOX [Concomitant]
     Active Substance: CELECOXIB
     Route: 048
     Dates: start: 20130615, end: 20140705
  14. DEXART [Concomitant]
     Active Substance: DEXAMETHASONE SODIUM PHOSPHATE
     Route: 065
     Dates: start: 20130626, end: 20140620

REACTIONS (5)
  - Peritonitis [Fatal]
  - Ileal perforation [Fatal]
  - Septic shock [Fatal]
  - Cachexia [Fatal]
  - Pneumonia [Fatal]

NARRATIVE: CASE EVENT DATE: 20140706
